FAERS Safety Report 5106955-4 (Version None)
Quarter: 2006Q3

REPORT INFORMATION
  Report Type: 
  Country: None (occurrence: None)
  Receive Date: 20060913
  Receipt Date: 20060911
  Transmission Date: 20061208
  Serious: Yes (Hospitalization, Other)
  Sender: FDA-Public Use
  Company Number: FRWYE883511SEP06

PATIENT
  Age: 51 Year
  Sex: Male

DRUGS (2)
  1. ADVIL [Suspect]
     Indication: TOOTHACHE
     Dosage: 200 MG 10X PER 12 HR
     Dates: start: 20060523, end: 20060524
  2. TRAMADOL HCL [Suspect]
     Indication: TOOTHACHE
     Dosage: 1 TABLET 6X PER 12 HR
     Dates: start: 20060523, end: 20060524

REACTIONS (4)
  - BLOOD BICARBONATE DECREASED [None]
  - CONVULSION [None]
  - METABOLIC ACIDOSIS [None]
  - OVERDOSE [None]
